FAERS Safety Report 7581824-9 (Version None)
Quarter: 2011Q2

REPORT INFORMATION
  Report Type: 
  Country: None (occurrence: None)
  Receive Date: 20110629
  Receipt Date: 20110620
  Transmission Date: 20111010
  Serious: Yes (Other)
  Sender: FDA-Public Use
  Company Number: US-RB-029303-11

PATIENT
  Age: 26 Month
  Sex: Female

DRUGS (1)
  1. SUBOXONE [Suspect]
     Dosage: MAY HAVE TAKEN ONE TABLET OF UNKNOWN DOSAGE FORM
     Route: 048
     Dates: start: 20091026, end: 20091026

REACTIONS (6)
  - UNRESPONSIVE TO STIMULI [None]
  - SOMNOLENCE [None]
  - HEART RATE INCREASED [None]
  - OXYGEN SATURATION DECREASED [None]
  - ACCIDENTAL OVERDOSE [None]
  - MIOSIS [None]
